FAERS Safety Report 9226811 (Version 1)
Quarter: 2013Q2

REPORT INFORMATION
  Report Type: Spontaneous
  Country: IT (occurrence: IT)
  Receive Date: 20130412
  Receipt Date: 20130412
  Transmission Date: 20140414
  Serious: Yes (Other)
  Sender: FDA-Public Use
  Company Number: IT-JNJFOC-20130402199

PATIENT
  Age: 12 Month
  Sex: Male

DRUGS (2)
  1. RISPERDAL [Suspect]
     Indication: ACCIDENTAL EXPOSURE TO PRODUCT
     Route: 048
     Dates: start: 20130402
  2. CLOZAPINA [Suspect]
     Indication: ACCIDENTAL EXPOSURE TO PRODUCT
     Route: 048
     Dates: start: 20130402

REACTIONS (4)
  - Confusional state [Unknown]
  - Sopor [Unknown]
  - Accidental exposure to product by child [Unknown]
  - Sluggishness [Unknown]
